FAERS Safety Report 9326787 (Version 2)
Quarter: 2014Q4

REPORT INFORMATION
  Report Type: Spontaneous
  Country: AU (occurrence: None)
  Receive Date: 20130522
  Receipt Date: 20141113
  Transmission Date: 20150529
  Serious: Yes (Life-Threatening, Hospitalization)
  Sender: FDA-Public Use
  Company Number: GAM-132-13-AU

PATIENT
  Age: 62 Year
  Sex: Male

DRUGS (1)
  1. OCTAGAM IMMUNE GLOBULIN (HUMAN) [Suspect]
     Active Substance: HUMAN IMMUNOGLOBULIN G
     Indication: CHRONIC INFLAMMATORY DEMYELINATING POLYRADICULONEUROPATHY
     Dosage: 60 G (1X 1 /D) INTRAVENOUS (NOT OTHERWISE SPECIFIED)
     Route: 042
     Dates: start: 20130105, end: 20130305

REACTIONS (7)
  - Haemolysis [None]
  - Haematuria [None]
  - Jaundice [None]
  - Fatigue [None]
  - Renal failure [None]
  - Haemoglobinuria [None]
  - Product quality issue [None]

NARRATIVE: CASE EVENT DATE: 201305
